FAERS Safety Report 7414356 (Version 14)
Quarter: 2012Q4

REPORT INFORMATION
  Report Type: 
  Country: CA (occurrence: CA)
  Receive Date: 20100609
  Receipt Date: 20121106
  Transmission Date: 20130627
  Serious: Yes (Death, Hospitalization, Other)
  Sender: FDA-Public Use
  Company Number: PHHY2010CA35379

PATIENT
  Sex: Female

DRUGS (1)
  1. SANDOSTATIN LAR [Suspect]
     Indication: CARCINOID TUMOUR
     Dosage: 30 mg, every 4 weeks
     Route: 030
     Dates: start: 20080603

REACTIONS (19)
  - Pneumonia [Fatal]
  - Dyspnoea [Fatal]
  - Dyspnoea exertional [Fatal]
  - Musculoskeletal chest pain [Fatal]
  - Lung disorder [Fatal]
  - Cardiac failure congestive [Fatal]
  - Malignant neoplasm progression [Fatal]
  - Lung neoplasm malignant [Fatal]
  - Coma [Unknown]
  - Loss of consciousness [Unknown]
  - Pyrexia [Unknown]
  - Feeling cold [Unknown]
  - General physical condition abnormal [Unknown]
  - Back pain [Unknown]
  - Gait disturbance [Unknown]
  - Blood pressure systolic increased [Unknown]
  - Blood pressure diastolic decreased [Unknown]
  - Heart rate increased [Unknown]
  - Injection site pain [Unknown]
